FAERS Safety Report 8810929 (Version 1)
Quarter: 2012Q4

REPORT INFORMATION
  Report Type: Report from Study
  Country: US (occurrence: US)
  Receive Date: 20120927
  Receipt Date: 20120927
  Transmission Date: 20130627
  Serious: Yes (Other)
  Sender: FDA-Public Use
  Company Number: US-JNJFOC-20120908295

PATIENT
  Age: 72 None
  Sex: Female
  Weight: 53.98 kg

DRUGS (1)
  1. REMICADE [Suspect]
     Indication: RHEUMATOID ARTHRITIS
     Dosage: 1 unit/every 7 weeks
     Route: 042
     Dates: start: 2006

REACTIONS (3)
  - Aneurysm [Not Recovered/Not Resolved]
  - Sinusitis [Recovered/Resolved]
  - Nasal dryness [Not Recovered/Not Resolved]
